FAERS Safety Report 24885116 (Version 1)
Quarter: 2025Q1

REPORT INFORMATION
  Report Type: Spontaneous
  Country: US (occurrence: US)
  Receive Date: 20250124
  Receipt Date: 20250124
  Transmission Date: 20250409
  Serious: Yes (Life-Threatening, Other)
  Sender: BOEHRINGER INGELHEIM
  Company Number: US-Komodo Health-a23aa000005QIjBAAW

PATIENT
  Sex: Male

DRUGS (1)
  1. JARDIANCE [Suspect]
     Active Substance: EMPAGLIFLOZIN
     Indication: Product used for unknown indication

REACTIONS (7)
  - Cerebrovascular accident [Unknown]
  - Cardiac amyloidosis [Unknown]
  - Thrombosis [Unknown]
  - Frequent bowel movements [Recovering/Resolving]
  - Gastrointestinal disorder [Recovering/Resolving]
  - Chromaturia [Unknown]
  - Pollakiuria [Unknown]

NARRATIVE: CASE EVENT DATE: 20250101
